FAERS Safety Report 5223210-2 (Version None)
Quarter: 2007Q1

REPORT INFORMATION
  Report Type: 
  Country: None (occurrence: None)
  Receive Date: 20061201
  Receipt Date: 20060711
  Transmission Date: 20070707
  Serious: No
  Sender: FDA-Public Use
  Company Number: 2006PV007178

PATIENT
  Age: 74 Year
  Sex: Male
  Weight: 99.7913 kg

DRUGS (7)
  1. BYETTA [Suspect]
     Indication: DIABETES MELLITUS NON-INSULIN-DEPENDENT
     Dosage: SEE IMAGE
     Route: 058
     Dates: start: 20051226, end: 20060101
  2. BYETTA [Suspect]
     Indication: DIABETES MELLITUS NON-INSULIN-DEPENDENT
     Dosage: SEE IMAGE
     Route: 058
     Dates: start: 20060101, end: 20060401
  3. BYETTA [Suspect]
     Indication: DIABETES MELLITUS NON-INSULIN-DEPENDENT
     Dosage: SEE IMAGE
     Route: 058
     Dates: start: 20060401
  4. BYETTA [Suspect]
  5. ACTOS [Concomitant]
  6. METFORMIN HCL [Concomitant]
  7. FORTAMET [Concomitant]

REACTIONS (8)
  - BLOOD GLUCOSE DECREASED [None]
  - CONDITION AGGRAVATED [None]
  - DIARRHOEA [None]
  - FEELING JITTERY [None]
  - MALAISE [None]
  - NAUSEA [None]
  - RENAL PAIN [None]
  - VOMITING [None]
